FAERS Safety Report 8910535 (Version 1)
Quarter: 2012Q4

REPORT INFORMATION
  Report Type: 
  Country: US (occurrence: US)
  Receive Date: 20121114
  Receipt Date: 20121114
  Transmission Date: 20130627
  Serious: Yes (Other)
  Sender: FDA-Public Use
  Company Number: US-TEVA-364752USA

PATIENT
  Sex: Female
  Weight: 77.18 kg

DRUGS (7)
  1. PROVIGIL [Suspect]
     Indication: NARCOLEPSY
     Dosage: 1/2 tab (50 mg daily)
     Route: 048
     Dates: start: 2005
  2. PROVIGIL [Suspect]
     Dosage: 100 Milligram Daily;
     Route: 048
  3. PROVIGIL [Suspect]
     Dosage: 2 x 100 mg
     Route: 048
  4. PROVIGIL [Suspect]
     Dosage: 100 Milligram Daily;
     Route: 048
     Dates: end: 201205
  5. PREDNISONE [Suspect]
     Indication: POLYMYALGIA RHEUMATICA
  6. RITALIN [Suspect]
  7. PERCOCET [Concomitant]

REACTIONS (5)
  - Fracture [Unknown]
  - Drug ineffective [Unknown]
  - Somnolence [Unknown]
  - Nausea [Unknown]
  - Nervousness [Unknown]
